FAERS Safety Report 17657353 (Version 1)
Quarter: 2020Q2

REPORT INFORMATION
  Report Type: Spontaneous
  Country: US (occurrence: US)
  Receive Date: 20200410
  Receipt Date: 20200410
  Transmission Date: 20200713
  Serious: Yes (Other)
  Sender: FDA-Public Use
  Company Number: US-PFIZER INC-2020146596

PATIENT
  Age: 56 Year
  Sex: Female

DRUGS (1)
  1. XELJANZ XR [Suspect]
     Active Substance: TOFACITINIB CITRATE
     Indication: RHEUMATOID ARTHRITIS
     Dosage: 11 MG, 1X/DAY
     Route: 048
     Dates: start: 201908, end: 20200401

REACTIONS (9)
  - Ankylosing spondylitis [Unknown]
  - Hypoaesthesia [Unknown]
  - Sinusitis [Unknown]
  - Intervertebral disc degeneration [Unknown]
  - Joint lock [Unknown]
  - Movement disorder [Unknown]
  - Insomnia [Unknown]
  - Rheumatoid arthritis [Unknown]
  - Gait disturbance [Unknown]

NARRATIVE: CASE EVENT DATE: 202003
